FAERS Safety Report 9107654 (Version 4)
Quarter: 2013Q3

REPORT INFORMATION
  Report Type: Spontaneous
  Country: US (occurrence: US)
  Receive Date: 20130221
  Receipt Date: 20130729
  Transmission Date: 20140515
  Serious: Yes (Hospitalization, Other)
  Sender: FDA-Public Use
  Company Number: US-009507513-1203USA01173

PATIENT
  Sex: Female

DRUGS (4)
  1. FOSAMAX [Suspect]
     Indication: OSTEOPOROSIS
     Route: 048
     Dates: start: 1997, end: 201007
  2. ALENDRONATE SODIUM [Suspect]
     Indication: OSTEOPOROSIS
  3. OS-CAL (CALCIUM CARBONATE) [Concomitant]
     Dosage: ONE, QD
     Route: 048
  4. VITAMIN D (UNSPECIFIED) [Concomitant]
     Dosage: 50000 U, QW
     Route: 048

REACTIONS (23)
  - Open reduction of fracture [Unknown]
  - Coronary arterial stent insertion [Unknown]
  - Femur fracture [Unknown]
  - Radius fracture [Recovered/Resolved]
  - Fall [Unknown]
  - Impaired healing [Unknown]
  - Tendon disorder [Unknown]
  - Hypothyroidism [Unknown]
  - Blood cholesterol increased [Unknown]
  - Cardiac disorder [Unknown]
  - Low turnover osteopathy [Unknown]
  - Infection [Recovered/Resolved]
  - Bursitis [Unknown]
  - Osteoarthritis [Unknown]
  - Fluid retention [Unknown]
  - Adverse drug reaction [Unknown]
  - Coronary artery disease [Unknown]
  - Closed fracture manipulation [Unknown]
  - Medical device removal [Unknown]
  - Upper limb fracture [Unknown]
  - Fracture [Unknown]
  - Osteopenia [Unknown]
  - Musculoskeletal discomfort [Unknown]
